FAERS Safety Report 4646172-5 (Version None)
Quarter: 2005Q2

REPORT INFORMATION
  Report Type: 
  Country: None (occurrence: None)
  Receive Date: 20050422
  Receipt Date: 20050422
  Transmission Date: 20051028
  Serious: Yes (Life-Threatening, Hospitalization, Disabling)
  Sender: FDA-Public Use
  Company Number: None

PATIENT
  Sex: Female
  Weight: 61.6892 kg

DRUGS (2)
  1. MINOCYCLINE (DYNACIN) [Suspect]
     Indication: ACNE CYSTIC
     Dosage: SEE ITEM B5
     Dates: start: 19790101, end: 20040917
  2. ACCUTANE [Concomitant]

REACTIONS (9)
  - BONE PAIN [None]
  - DEPENDENCE [None]
  - DEPRESSION [None]
  - DISTURBANCE IN ATTENTION [None]
  - EUPHORIC MOOD [None]
  - FIBROMYALGIA [None]
  - LUPUS-LIKE SYNDROME [None]
  - PHOTOSENSITIVITY REACTION [None]
  - SUICIDE ATTEMPT [None]
